FAERS Safety Report 17811601 (Version 1)
Quarter: 2020Q2

REPORT INFORMATION
  Report Type: Spontaneous
  Country: US (occurrence: US)
  Receive Date: 20200521
  Receipt Date: 20200521
  Transmission Date: 20200714
  Serious: Yes (Other)
  Sender: FDA-Public Use
  Company Number: None

PATIENT
  Age: 41 Year
  Sex: Female
  Weight: 117 kg

DRUGS (7)
  1. KEFLEX [Suspect]
     Active Substance: CEPHALEXIN
  2. MELATONIN [Concomitant]
     Active Substance: MELATONIN
  3. TIZANIDINE. [Suspect]
     Active Substance: TIZANIDINE
     Indication: MUSCLE TIGHTNESS
     Dosage: ?          QUANTITY:2 TABLET(S);?
     Route: 048
     Dates: start: 20160101, end: 20200520
  4. AMHETA/DEXTRO [Concomitant]
  5. ARNICA MONTANA. [Concomitant]
     Active Substance: HOMEOPATHICS
  6. TIZANIDINE. [Suspect]
     Active Substance: TIZANIDINE
     Indication: INSOMNIA
     Dosage: ?          QUANTITY:2 TABLET(S);?
     Route: 048
     Dates: start: 20160101, end: 20200520
  7. AZITHROMYCIN ANHYDROUS. [Suspect]
     Active Substance: AZITHROMYCIN ANHYDROUS

REACTIONS (4)
  - Hallucination [None]
  - Palpitations [None]
  - Drug hypersensitivity [None]
  - Drug interaction [None]

NARRATIVE: CASE EVENT DATE: 20200420
